FAERS Safety Report 8601170-1 (Version None)
Quarter: 2012Q3

REPORT INFORMATION
  Report Type: 
  Country: None (occurrence: None)
  Receive Date: 20120817
  Receipt Date: 20120814
  Transmission Date: 20120928
  Serious: Yes (Death, Other)
  Sender: FDA-Public Use
  Company Number: PHHY2012BR070370

PATIENT
  Sex: Female

DRUGS (2)
  1. DIOVAN HCT [Suspect]
     Indication: HYPERTENSION
     Dosage: 1 DF (25 MG HCT\320 MG VALS) , DAILY
     Route: 048
  2. FORMOTEROL FUMARATE [Suspect]
     Indication: DYSPNOEA
     Dosage: 2 DF (12 MCG FOR\400 MCG BUD) , BID

REACTIONS (4)
  - MULTI-ORGAN FAILURE [None]
  - CARDIAC DISORDER [None]
  - LIVER DISORDER [None]
  - RENAL DISORDER [None]
